FAERS Safety Report 26022542 (Version 1)
Quarter: 2025Q4

REPORT INFORMATION
  Report Type: Spontaneous
  Country: EU (occurrence: EU)
  Receive Date: 20251110
  Receipt Date: 20251110
  Transmission Date: 20260119
  Serious: Yes (Life-Threatening, Hospitalization, Other)
  Sender: FRESENIUS KABI
  Company Number: None

PATIENT
  Age: 43 Year
  Sex: Male
  Weight: 92 kg

DRUGS (3)
  1. PROPOFOL [Suspect]
     Active Substance: PROPOFOL
     Indication: Sedative therapy
     Dosage: SIMULTANEOUSLY WITH BAXTER SODIUM CHLORIDE 0.9%?FOA: SOLUTION FOR INJECTION
     Route: 042
     Dates: start: 20251018, end: 20251018
  2. SODIUM CHLORIDE 0.9% [Suspect]
     Active Substance: SODIUM CHLORIDE
     Indication: Product used for unknown indication
     Dosage: SIMULTANEOUSLY WITH PROPOFOL MCT/LCT FRESENIUS?FOA: SOLUTION FOR INFUSION
     Dates: start: 20251018, end: 20251018
  3. MAGNESIUM SULFATE\POTASSIUM SULFATE\SODIUM SULFATE [Concomitant]
     Active Substance: MAGNESIUM SULFATE\POTASSIUM SULFATE\SODIUM SULFATE
     Indication: Colonoscopy
     Dosage: FOA: CONCENTRATE FOR ORAL SOLUTION
     Dates: start: 202510, end: 202510

REACTIONS (9)
  - Dyspnoea [Recovering/Resolving]
  - Pyrexia [Recovering/Resolving]
  - Hypotension [Recovering/Resolving]
  - Tachycardia [Recovering/Resolving]
  - Tachypnoea [Recovering/Resolving]
  - Fatigue [Recovering/Resolving]
  - Chills [Recovering/Resolving]
  - Suspected product quality issue [Unknown]
  - Sepsis [Recovering/Resolving]

NARRATIVE: CASE EVENT DATE: 20251018
